FAERS Safety Report 10979803 (Version 1)
Quarter: 2015Q2

REPORT INFORMATION
  Report Type: Spontaneous
  Country: CA (occurrence: CA)
  Receive Date: 20150402
  Receipt Date: 20150402
  Transmission Date: 20150821
  Serious: Yes (Other)
  Sender: FDA-Public Use
  Company Number: CA-ASTRAZENECA-2015SE29367

PATIENT
  Sex: Male

DRUGS (4)
  1. LANTUS [Concomitant]
     Active Substance: INSULIN GLARGINE
     Dates: start: 2014
  2. FORXIGA [Suspect]
     Active Substance: DAPAGLIFLOZIN
     Indication: DIABETES MELLITUS
     Route: 048
     Dates: start: 20150323
  3. METFORMIN [Concomitant]
     Active Substance: METFORMIN HYDROCHLORIDE
     Dates: start: 2003
  4. NOVORAPID [Concomitant]
     Active Substance: INSULIN ASPART
     Dates: start: 2006

REACTIONS (2)
  - Polyuria [Not Recovered/Not Resolved]
  - Micturition urgency [Not Recovered/Not Resolved]

NARRATIVE: CASE EVENT DATE: 20150324
